FAERS Safety Report 8102141-4 (Version None)
Quarter: 2012Q1

REPORT INFORMATION
  Report Type: 
  Country: None (occurrence: None)
  Receive Date: 20120201
  Receipt Date: 20120117
  Transmission Date: 20120608
  Serious: Yes (Hospitalization, Other)
  Sender: FDA-Public Use
  Company Number: DE-PAR PHARMACEUTICAL, INC-2012SCPR003924

PATIENT

DRUGS (5)
  1. LAMICTAL [Concomitant]
     Indication: DEPRESSION
     Dosage: 25 MG, / DAY, INCREASED BY 50 MG PER WEEK
     Route: 065
  2. OLANZAPINE [Suspect]
     Indication: BIPOLAR DISORDER
     Dosage: 2.5 MG, / DAY
     Route: 065
  3. LAMICTAL [Concomitant]
     Dosage: 300 MG, / DAY
     Route: 065
  4. TRAZODONE HCL [Concomitant]
     Indication: DEPRESSION
     Dosage: 100 MG, / DAY, INCREASED BY 100 MG PER WEEK
     Route: 065
  5. TRAZODONE HCL [Concomitant]
     Dosage: 300 MG, / DAY
     Route: 065

REACTIONS (2)
  - DRUG RASH WITH EOSINOPHILIA AND SYSTEMIC SYMPTOMS [None]
  - ANAPHYLACTIC SHOCK [None]
